FAERS Safety Report 8936074 (Version 1)
Quarter: 2012Q4

REPORT INFORMATION
  Report Type: 
  Country: US (occurrence: US)
  Receive Date: 20121130
  Receipt Date: 20121130
  Transmission Date: 20130627
  Serious: No
  Sender: FDA-Public Use
  Company Number: US-ABBOTT-12P-163-0988987-00

PATIENT
  Sex: Male
  Weight: 90.8 kg

DRUGS (3)
  1. ANDROGEL [Suspect]
     Indication: BLOOD TESTOSTERONE DECREASED
     Dates: start: 201208, end: 201209
  2. LISINOPRIL/HYDROCHLOROTHIAZIDE [Concomitant]
     Indication: HYPERTENSION
     Dosage: 10/12.5 mg
  3. LISINOPRIL/HYDROCHLOROTHIAZIDE [Concomitant]
     Dosage: 20/12.5 mg
     Dates: start: 201209

REACTIONS (1)
  - Hypertension [Unknown]
